FAERS Safety Report 13555431 (Version 1)
Quarter: 2017Q2

REPORT INFORMATION
  Report Type: Spontaneous
  Country: CA (occurrence: CA)
  Receive Date: 20170517
  Receipt Date: 20170517
  Transmission Date: 20170830
  Serious: Yes (Other)
  Sender: FDA-Public Use
  Company Number: CA-MYLANLABS-2017M1029743

PATIENT

DRUGS (10)
  1. LEVOTHYROXINE. [Suspect]
     Active Substance: LEVOTHYROXINE
     Dosage: 100 ?G, QD
     Route: 048
     Dates: start: 201304
  2. ABACAVIR W/LAMIVUDINE [Concomitant]
     Active Substance: ABACAVIR\LAMIVUDINE
     Indication: HIV INFECTION
     Dosage: 600MG (ABACAVIR) AND 300MG (LAMIVUDINE) PER TABLET, RESPECTIVELY (1 TABLET DAILY)
     Route: 048
     Dates: start: 2010
  3. LEVONORGESTREL. [Concomitant]
     Active Substance: LEVONORGESTREL
     Indication: INTRA-UTERINE CONTRACEPTIVE DEVICE
     Dates: start: 201501
  4. DARUNAVIR W/RITONAVIR [Interacting]
     Active Substance: DARUNAVIR\RITONAVIR
     Indication: HIV INFECTION
     Dosage: 800MG (DARUNAVIR) AND 100MG (RITONAVIR), RESPECTIVELY ONCE DAILY
     Route: 065
     Dates: start: 201404
  5. LEVOTHYROXINE. [Suspect]
     Active Substance: LEVOTHYROXINE
     Dosage: 125 ?G, QD
     Route: 048
     Dates: start: 201306
  6. LEVOTHYROXINE. [Suspect]
     Active Substance: LEVOTHYROXINE
     Dosage: 137 ?G, QD AND 175?G
     Route: 048
     Dates: start: 201311
  7. LOPINAVIR/RITONAVIR [Interacting]
     Active Substance: LOPINAVIR\RITONAVIR
     Indication: HIV INFECTION
     Dosage: 200MG (LOPINAVIR) AND 50MG (RITONAVIR) PER TABLET, RESPECTIVELY (2 TABLETS TWICE DAILY)
     Route: 048
     Dates: start: 2010, end: 201404
  8. FERROUS SULFATE. [Concomitant]
     Active Substance: FERROUS SULFATE
     Indication: VITAMIN SUPPLEMENTATION
     Dosage: 300 MG DAILY
     Route: 065
  9. LEVOTHYROXINE. [Suspect]
     Active Substance: LEVOTHYROXINE
     Indication: GOITRE
     Dosage: FOLLOWING ADR, DOSE INCREASED TO 100MCG, 125MCG, 137MCG AND 175MCG
     Route: 048
     Dates: start: 201209
  10. MEDROXYPROGESTERONE [Concomitant]
     Active Substance: MEDROXYPROGESTERONE
     Indication: PRODUCT USED FOR UNKNOWN INDICATION
     Route: 065
     Dates: start: 201309

REACTIONS (3)
  - Maternal exposure during pregnancy [Recovered/Resolved]
  - Hypothyroidism [Recovered/Resolved]
  - Drug interaction [Recovered/Resolved]
